FAERS Safety Report 17437034 (Version 1)
Quarter: 2020Q1

REPORT INFORMATION
  Report Type: Spontaneous
  Country: GB (occurrence: GB)
  Receive Date: 20200219
  Receipt Date: 20200219
  Transmission Date: 20200409
  Serious: Yes (Hospitalization)
  Sender: FDA-Public Use
  Company Number: GB-MYLANLABS-2020M1018076

PATIENT
  Age: 95 Year
  Sex: Female

DRUGS (10)
  1. TRAMADOL. [Suspect]
     Active Substance: TRAMADOL
     Indication: BACK PAIN
     Dosage: UNK UNK, PRN (50MG - 100MG 4 TIMES A DAY)
     Route: 048
  2. GAVISCON ADVANCE                   /01340901/ [Concomitant]
     Dosage: 5 MILLILITER, PRN (UP TO 4 TIMES A DAY)
     Route: 048
  3. TERBUTALINE [Concomitant]
     Active Substance: TERBUTALINE
     Dosage: 500MCG/DOSE 1 OR 2 PUFFS AS NECESSARY
     Route: 055
  4. BISOPROLOL [Concomitant]
     Active Substance: BISOPROLOL
     Dosage: IN MORNING
     Route: 048
  5. CASSIA SENNA [Concomitant]
     Active Substance: HERBALS\SENNOSIDES
     Dosage: AT NIGHT
     Route: 048
  6. APIXABAN [Concomitant]
     Active Substance: APIXABAN
     Dosage: IN MORNING AND AT NIGHT
     Route: 048
  7. LEVOTHYROXINE. [Concomitant]
     Active Substance: LEVOTHYROXINE
     Dosage: IN MORNING
     Route: 048
  8. MACROGOL [Concomitant]
     Active Substance: POLYETHYLENE GLYCOLS
     Dosage: 3 DOSAGE FORM, QD (SACHET)
     Route: 048
  9. SODIUM CITRATE. [Concomitant]
     Active Substance: SODIUM CITRATE
     Dosage: 5 MILLILITER, PRN (FOR ENEMA)
     Route: 054
  10. PARACETAMOL [Concomitant]
     Active Substance: ACETAMINOPHEN
     Dosage: 3 GRAM, QD
     Route: 048

REACTIONS (4)
  - Decreased activity [Unknown]
  - Delirium [Unknown]
  - Constipation [Recovered/Resolved]
  - Somnolence [Unknown]

NARRATIVE: CASE EVENT DATE: 20191109
